FAERS Safety Report 24633084 (Version 1)
Quarter: 2024Q4

REPORT INFORMATION
  Report Type: Spontaneous
  Country: IN (occurrence: IN)
  Receive Date: 20241118
  Receipt Date: 20241118
  Transmission Date: 20250114
  Serious: Yes (Hospitalization, Other)
  Sender: VISTAPHARM
  Company Number: IN-VISTAPHARM-2024-IN-000203

PATIENT
  Age: 3 Month
  Sex: Female

DRUGS (1)
  1. PHENYTOIN [Suspect]
     Active Substance: PHENYTOIN
     Indication: Product used for unknown indication
     Route: 015

REACTIONS (2)
  - Vitamin B12 deficiency [Unknown]
  - Tremor [Unknown]
